FAERS Safety Report 14099623 (Version 2)
Quarter: 2017Q4

REPORT INFORMATION
  Report Type: Spontaneous
  Country: US (occurrence: US)
  Receive Date: 20171017
  Receipt Date: 20171219
  Transmission Date: 20180321
  Serious: Yes (Hospitalization, Other)
  Sender: FDA-Public Use
  Company Number: US-ELI_LILLY_AND_COMPANY-US201710004685

PATIENT
  Age: 49 Year
  Sex: Female
  Weight: 115 kg

DRUGS (4)
  1. LORAZEPAM. [Concomitant]
     Active Substance: LORAZEPAM
     Indication: PRODUCT USED FOR UNKNOWN INDICATION
     Dosage: 1-2 MG, PRN
  2. HUMALOG [Suspect]
     Active Substance: INSULIN LISPRO
     Dosage: UNK, BASED ON BLOOD SUGAR
     Route: 058
  3. HUMALOG [Suspect]
     Active Substance: INSULIN LISPRO
     Indication: TYPE 2 DIABETES MELLITUS
     Dosage: UNK, BASED ON BLOOD SUGAR
     Route: 058
     Dates: start: 199710
  4. ATENOLOL. [Concomitant]
     Active Substance: ATENOLOL
     Indication: PRODUCT USED FOR UNKNOWN INDICATION
     Dosage: 25 MG, TID

REACTIONS (19)
  - Pallor [Unknown]
  - Intentional product misuse [Unknown]
  - Contusion [Unknown]
  - Panic reaction [Not Recovered/Not Resolved]
  - Glycosylated haemoglobin increased [Not Recovered/Not Resolved]
  - Abdominal mass [Unknown]
  - Dyspepsia [Unknown]
  - Cluster headache [Recovered/Resolved]
  - Bile duct obstruction [Recovered/Resolved]
  - Blood pressure increased [Not Recovered/Not Resolved]
  - Anxiety [Not Recovered/Not Resolved]
  - Dyspnoea [Unknown]
  - Hernia [Unknown]
  - Nervousness [Not Recovered/Not Resolved]
  - Sensory disturbance [Unknown]
  - Heart rate increased [Not Recovered/Not Resolved]
  - Laboratory test abnormal [Recovering/Resolving]
  - Headache [Not Recovered/Not Resolved]
  - Lipoma [Unknown]

NARRATIVE: CASE EVENT DATE: 2007
